FAERS Safety Report 6066129-X (Version None)
Quarter: 2009Q1

REPORT INFORMATION
  Report Type: 
  Country: None (occurrence: None)
  Receive Date: 20090205
  Receipt Date: 20090130
  Transmission Date: 20090719
  Serious: Yes (Death, Other)
  Sender: FDA-Public Use
  Company Number: US-CELGENEUS-163-21880-08110275

PATIENT
  Sex: Male

DRUGS (11)
  1. REVLIMID [Suspect]
     Indication: MYELODYSPLASTIC SYNDROME
     Route: 048
     Dates: start: 20080416, end: 20080422
  2. REVLIMID [Suspect]
     Route: 048
     Dates: start: 20080505, end: 20080729
  3. LANTUS [Concomitant]
     Indication: DIABETES MELLITUS
     Dosage: 20 UNITS
     Route: 065
  4. METOPROLOL TARTRATE [Concomitant]
     Route: 048
  5. FLOMAX [Concomitant]
     Route: 065
  6. LORTAB [Concomitant]
     Indication: PAIN
     Route: 065
  7. DIGOXIN [Concomitant]
     Dosage: 0.125
     Route: 065
  8. HYDRALAZINE HCL [Concomitant]
     Route: 065
  9. ZEMPLAR [Concomitant]
     Route: 065
  10. ALLOPURINOL [Concomitant]
     Indication: DRUG USE FOR UNKNOWN INDICATION
  11. GABAPENTIN [Concomitant]
     Indication: DRUG USE FOR UNKNOWN INDICATION
     Route: 065

REACTIONS (4)
  - ACUTE MYELOID LEUKAEMIA [None]
  - MALIGNANT NEOPLASM PROGRESSION [None]
  - RASH PAPULAR [None]
  - RESPIRATORY FAILURE [None]
